FAERS Safety Report 4548334-4 (Version None)
Quarter: 2005Q1

REPORT INFORMATION
  Report Type: 
  Country: None (occurrence: None)
  Receive Date: 20050106
  Receipt Date: 20050106
  Transmission Date: 20050727
  Serious: No
  Sender: FDA-Public Use
  Company Number: None

PATIENT
  Age: 18 Year
  Sex: Female
  Weight: 79.3795 kg

DRUGS (3)
  1. DEPO-MEDROL [Suspect]
     Indication: INTERVERTEBRAL DISC PROTRUSION
     Dosage: 40 MGS L3-4 EPIDURAL, 40 MGS L3-5 EPIDURAL
     Route: 008
     Dates: start: 20040301, end: 20040423
  2. DEPO-MEDROL [Suspect]
     Indication: PAIN IN EXTREMITY
     Dosage: 40 MGS L3-4 EPIDURAL, 40 MGS L3-5 EPIDURAL
     Route: 008
     Dates: start: 20040301, end: 20040423
  3. ULTRACET [Concomitant]

REACTIONS (8)
  - ABASIA [None]
  - ACTIVITIES OF DAILY LIVING IMPAIRED [None]
  - BACK PAIN [None]
  - DYSSTASIA [None]
  - OFF LABEL USE [None]
  - PAIN [None]
  - PAIN IN EXTREMITY [None]
  - SLEEP DISORDER [None]
